FAERS Safety Report 5048416-7 (Version None)
Quarter: 2006Q3

REPORT INFORMATION
  Report Type: 
  Country: None (occurrence: None)
  Receive Date: 20060705
  Receipt Date: 20060616
  Transmission Date: 20061208
  Serious: Yes (Hospitalization)
  Sender: FDA-Public Use
  Company Number: US200606003884

PATIENT
  Age: 62 Year
  Sex: Male

DRUGS (4)
  1. HUMALOG [Suspect]
     Indication: BLOOD GLUCOSE INCREASED
     Dosage: SEE IMAGE
     Dates: start: 20030101
  2. HUMALOG PEN [Concomitant]
  3. LANTUS [Concomitant]
  4. NOVOLOG (INSULIN APART) [Concomitant]

REACTIONS (4)
  - ARTERIAL STENOSIS LIMB [None]
  - PHARMACEUTICAL PRODUCT COMPLAINT [None]
  - SKIN DISCOLOURATION [None]
  - VASCULAR GRAFT OCCLUSION [None]
